FAERS Safety Report 23679375 (Version 1)
Quarter: 2024Q1

REPORT INFORMATION
  Report Type: Spontaneous
  Country: AU (occurrence: AU)
  Receive Date: 20240327
  Receipt Date: 20240327
  Transmission Date: 20240409
  Serious: Yes (Other)
  Sender: FDA-Public Use
  Company Number: AU-MYLANLABS-2024M1027143

PATIENT
  Sex: Female

DRUGS (1)
  1. VENLAFAXINE HYDROCHLORIDE [Suspect]
     Active Substance: VENLAFAXINE HYDROCHLORIDE
     Indication: Product used for unknown indication
     Dosage: UNK
     Route: 065

REACTIONS (10)
  - Cardiac flutter [Unknown]
  - Headache [Unknown]
  - Nausea [Unknown]
  - Mental disorder [Unknown]
  - Tinnitus [Unknown]
  - Malaise [Unknown]
  - Feeling of body temperature change [Unknown]
  - Dizziness [Unknown]
  - Depressed mood [Unknown]
  - Dyspnoea [Unknown]
